FAERS Safety Report 4724644-2 (Version None)
Quarter: 2005Q3

REPORT INFORMATION
  Report Type: 
  Country: None (occurrence: None)
  Receive Date: 20050721
  Receipt Date: 20050613
  Transmission Date: 20060218
  Serious: No
  Sender: FDA-Public Use
  Company Number: 2005SP001382

PATIENT
  Age: 72 Year
  Sex: Female
  Weight: 63.5036 kg

DRUGS (2)
  1. LUNESTA [Suspect]
     Indication: INSOMNIA
     Dosage: 2 MG; X1; ORAL
     Route: 048
     Dates: start: 20050610
  2. LEXAPRO [Concomitant]

REACTIONS (2)
  - DIARRHOEA [None]
  - VAGINAL HAEMORRHAGE [None]
